FAERS Safety Report 6003770-4 (Version None)
Quarter: 2008Q4

REPORT INFORMATION
  Report Type: 
  Country: None (occurrence: None)
  Receive Date: 20081216
  Receipt Date: 20081209
  Transmission Date: 20090506
  Serious: Yes (Life-Threatening, Other)
  Sender: FDA-Public Use
  Company Number: PHEH2008US09523

PATIENT
  Sex: Male

DRUGS (1)
  1. RECLAST [Suspect]
     Indication: OSTEOPOROSIS
     Dosage: UNK, UNK
     Dates: start: 20080827

REACTIONS (27)
  - ABASIA [None]
  - ABNORMAL FAECES [None]
  - ARTHRALGIA [None]
  - BACK PAIN [None]
  - BODY TEMPERATURE INCREASED [None]
  - CONSTIPATION [None]
  - DRY EYE [None]
  - DYSPNOEA [None]
  - DYSSTASIA [None]
  - DYSURIA [None]
  - EAR PAIN [None]
  - EYE PAIN [None]
  - FAECES HARD [None]
  - HEADACHE [None]
  - MUSCULOSKELETAL CHEST PAIN [None]
  - MUSCULOSKELETAL DISCOMFORT [None]
  - MUSCULOSKELETAL PAIN [None]
  - MYALGIA [None]
  - NECK PAIN [None]
  - NEUROPATHY PERIPHERAL [None]
  - PAIN [None]
  - PAIN IN EXTREMITY [None]
  - PAIN IN JAW [None]
  - SKIN ODOUR ABNORMAL [None]
  - SUICIDAL IDEATION [None]
  - TINNITUS [None]
  - TRANSIENT ISCHAEMIC ATTACK [None]
